FAERS Safety Report 5341115-3 (Version None)
Quarter: 2007Q2

REPORT INFORMATION
  Report Type: 
  Country: None (occurrence: None)
  Receive Date: 20070405
  Receipt Date: 20061108
  Transmission Date: 20071010
  Serious: No
  Sender: FDA-Public Use
  Company Number: US200610003143

PATIENT
  Age: 45 Year
  Sex: Female
  Weight: 74.4 kg

DRUGS (1)
  1. CYMBALTA [Suspect]
     Indication: DEPRESSION
     Dosage: SEE IMAGE

REACTIONS (2)
  - BLOOD PRESSURE INCREASED [None]
  - EYE PAIN [None]
